FAERS Safety Report 15005330 (Version 1)
Quarter: 2018Q2

REPORT INFORMATION
  Report Type: Spontaneous
  Country: US (occurrence: US)
  Receive Date: 20180613
  Receipt Date: 20180613
  Transmission Date: 20180711
  Serious: No
  Sender: FDA-Public Use
  Company Number: US-MYLANLABS-2018M1035079

PATIENT
  Age: 83 Year
  Sex: Female
  Weight: 78 kg

DRUGS (16)
  1. PHENYTEK [Suspect]
     Active Substance: PHENYTOIN SODIUM
     Route: 048
  2. ATORVASTATIN [Suspect]
     Active Substance: ATORVASTATIN
     Indication: PRODUCT USED FOR UNKNOWN INDICATION
     Dosage: UNK UNK, HS1 TABLET AT BED TIME
     Route: 048
  3. CETIRIZINE HCL TABLETS, USP [Suspect]
     Active Substance: CETIRIZINE HYDROCHLORIDE
     Dosage: 1 UNK, UNK
     Route: 048
  4. LISINOPRIL. [Suspect]
     Active Substance: LISINOPRIL
     Indication: PRODUCT USED FOR UNKNOWN INDICATION
     Dosage: 2.5 MG, QD
     Route: 048
  5. CETIRIZINE HCL TABLETS, USP [Suspect]
     Active Substance: CETIRIZINE HYDROCHLORIDE
     Indication: RHINORRHOEA
     Dosage: UNK UNK, QD
     Route: 048
  6. ATORVASTATIN [Suspect]
     Active Substance: ATORVASTATIN
     Dosage: UNK
     Route: 048
  7. PHENYTEK [Suspect]
     Active Substance: PHENYTOIN SODIUM
     Indication: PRODUCT USED FOR UNKNOWN INDICATION
     Dosage: 100 MG,ONCE IN MORNING, 2 AT NIGHT
     Route: 048
  8. CARVEDILOL. [Suspect]
     Active Substance: CARVEDILOL
     Indication: PRODUCT USED FOR UNKNOWN INDICATION
     Dosage: 25 MG, BID
     Route: 048
  9. OMEPRAZOLE. [Suspect]
     Active Substance: OMEPRAZOLE
     Indication: PRODUCT USED FOR UNKNOWN INDICATION
     Dosage: 20 MG, QD
     Route: 048
  10. LISINOPRIL. [Suspect]
     Active Substance: LISINOPRIL
     Dosage: UNK
     Route: 048
  11. CETIRIZINE HCL TABLETS, USP [Suspect]
     Active Substance: CETIRIZINE HYDROCHLORIDE
     Indication: DIZZINESS
     Dosage: UNK
     Route: 048
  12. CARVEDILOL. [Suspect]
     Active Substance: CARVEDILOL
     Dosage: UNK
     Route: 048
  13. CEPHALEXIN                         /00145501/ [Suspect]
     Active Substance: CEPHALEXIN
     Indication: PRODUCT USED FOR UNKNOWN INDICATION
     Dosage: 500 MG, BID
     Route: 048
     Dates: start: 20180521
  14. BRILINTA [Suspect]
     Active Substance: TICAGRELOR
     Indication: PRODUCT USED FOR UNKNOWN INDICATION
     Dosage: 90 MG, BID
     Route: 048
  15. OMEPRAZOLE. [Suspect]
     Active Substance: OMEPRAZOLE
     Dosage: UNK
     Route: 048
  16. VITAMINS                           /00067501/ [Concomitant]
     Active Substance: VITAMINS
     Indication: PRODUCT USED FOR UNKNOWN INDICATION
     Dosage: UNK

REACTIONS (3)
  - Drug ineffective [Not Recovered/Not Resolved]
  - Nasal dryness [Not Recovered/Not Resolved]
  - Inappropriate schedule of drug administration [Unknown]

NARRATIVE: CASE EVENT DATE: 20180523
